FAERS Safety Report 6288680-X (Version None)
Quarter: 2009Q3

REPORT INFORMATION
  Report Type: 
  Country: None (occurrence: None)
  Receive Date: 20090729
  Receipt Date: 20090723
  Transmission Date: 20100115
  Serious: Yes (Death)
  Sender: FDA-Public Use
  Company Number: FR-BAXTER-2009BH011673

PATIENT
  Age: 59 Year
  Sex: Male

DRUGS (6)
  1. UROMITEXAN BAXTER [Suspect]
     Indication: DRUG USE FOR UNKNOWN INDICATION
     Route: 042
     Dates: start: 20090615, end: 20090616
  2. HOLOXAN BAXTER [Suspect]
     Indication: LIPOSARCOMA METASTATIC
     Route: 065
     Dates: start: 20090501
  3. HOLOXAN BAXTER [Suspect]
     Route: 065
     Dates: start: 20090601
  4. HOLOXAN BAXTER [Suspect]
     Route: 042
     Dates: start: 20090615, end: 20090616
  5. PRIMPERAN [Concomitant]
     Indication: DRUG USE FOR UNKNOWN INDICATION
     Route: 065
  6. ONDANSETRON HCL [Concomitant]
     Indication: DRUG USE FOR UNKNOWN INDICATION
     Route: 042
     Dates: start: 20090615, end: 20090616

REACTIONS (1)
  - ENCEPHALOPATHY [None]
